FAERS Safety Report 10066561 (Version 1)
Quarter: 2014Q2

REPORT INFORMATION
  Report Type: Spontaneous
  Country: PH (occurrence: PH)
  Receive Date: 20140408
  Receipt Date: 20140408
  Transmission Date: 20141212
  Serious: Yes (Hospitalization)
  Sender: FDA-Public Use
  Company Number: PH-B.I. PHARMACEUTICALS,INC./RIDGEFIELD-2014-BI-15020RP

PATIENT
  Age: 66 Year
  Sex: Female

DRUGS (4)
  1. TRAJENTA [Suspect]
     Indication: DIABETES MELLITUS
     Dosage: 5 MG
     Route: 065
     Dates: start: 20140322, end: 20140325
  2. TRAJENTA [Suspect]
     Dosage: 5 MG
     Route: 065
     Dates: start: 20140326
  3. DIAMICRON [Suspect]
     Indication: DIABETES MELLITUS
     Dosage: 60 MG
     Route: 065
     Dates: start: 20140322, end: 20140325
  4. ASPIRIN [Concomitant]
     Dosage: 80 MG
     Route: 065
     Dates: start: 201403, end: 201403

REACTIONS (1)
  - Hypoglycaemia [Recovered/Resolved]
